FAERS Safety Report 16360052 (Version 1)
Quarter: 2019Q2

REPORT INFORMATION
  Report Type: Spontaneous
  Country: US (occurrence: US)
  Receive Date: 20190528
  Receipt Date: 20190528
  Transmission Date: 20190711
  Serious: No
  Sender: FDA-Public Use
  Company Number: US-GLENMARK PHARMACEUTICALS-2019GMK040514

PATIENT

DRUGS (5)
  1. MUPIROCIN OINTMENT USP, 2% [Suspect]
     Active Substance: MUPIROCIN
     Indication: POSTOPERATIVE WOUND INFECTION
     Dosage: UNK, OD
     Route: 061
     Dates: start: 201903, end: 201903
  2. BABY ASPIRIN [Concomitant]
     Active Substance: ASPIRIN
     Indication: HAEMORRHAGE
     Dosage: 81 MG, OD
     Route: 065
  3. GLIPIZIDE. [Concomitant]
     Active Substance: GLIPIZIDE
     Indication: BLOOD GLUCOSE INCREASED
     Dosage: UNK
     Route: 065
  4. CEPHALEXIN                         /00145501/ [Concomitant]
     Active Substance: CEPHALEXIN
     Indication: ANTIBIOTIC THERAPY
     Dosage: UNK, TID
     Route: 065
     Dates: start: 201903, end: 2019
  5. LOSARTAN. [Concomitant]
     Active Substance: LOSARTAN
     Indication: HYPERTENSION
     Dosage: UNK, OD
     Route: 065

REACTIONS (5)
  - Weight decreased [Recovering/Resolving]
  - Product use in unapproved indication [Unknown]
  - Diarrhoea [Recovering/Resolving]
  - Fatigue [Recovering/Resolving]
  - Asthenia [Recovering/Resolving]

NARRATIVE: CASE EVENT DATE: 2019
